FAERS Safety Report 21385159 (Version 2)
Quarter: 2023Q4

REPORT INFORMATION
  Report Type: Report from Study
  Country: KR (occurrence: KR)
  Receive Date: 20220928
  Receipt Date: 20231101
  Transmission Date: 20240109
  Serious: Yes (Other)
  Sender: FDA-Public Use
  Company Number: KR-TAKEDA-2022TUS067978

PATIENT

DRUGS (6)
  1. NIRAPARIB [Suspect]
     Active Substance: NIRAPARIB
     Indication: Product used for unknown indication
     Dosage: 200 MG, QD
     Route: 048
     Dates: start: 20210215
  2. AROTINOLOL HYDROCHLORIDE [Concomitant]
     Active Substance: AROTINOLOL HYDROCHLORIDE
     Indication: Hypertension
     Dosage: UNK UNK, QD, 0.5, TAB QD
     Route: 048
     Dates: start: 20200821
  3. NORVASC [Concomitant]
     Active Substance: AMLODIPINE BESYLATE
     Indication: Hypertension
     Dosage: 1 DF, QD
     Route: 048
     Dates: start: 20201117
  4. LIPITOR [Concomitant]
     Active Substance: ATORVASTATIN CALCIUM
     Indication: Hyperlipidaemia
     Dosage: 1 DF, QD
     Route: 048
     Dates: start: 20200821
  5. EDOXABAN TOSYLATE [Concomitant]
     Active Substance: EDOXABAN TOSYLATE
     Indication: Hyperlipidaemia
     Dosage: 1 DF, QD
     Route: 048
     Dates: start: 20201218
  6. EDOXABAN [Concomitant]
     Active Substance: EDOXABAN
     Indication: Pulmonary embolism
     Dosage: 30 MG, QD
     Route: 048
     Dates: start: 20201218

REACTIONS (1)
  - Ileus [Recovered/Resolved]

NARRATIVE: CASE EVENT DATE: 20210711
